FAERS Safety Report 6680146-8 (Version None)
Quarter: 2010Q2

REPORT INFORMATION
  Report Type: 
  Country: None (occurrence: None)
  Receive Date: 20100413
  Receipt Date: 20100402
  Transmission Date: 20101027
  Serious: Yes (Other)
  Sender: FDA-Public Use
  Company Number: JP-PFIZER INC-2010043830

PATIENT
  Sex: Female

DRUGS (3)
  1. ZOLOFT [Suspect]
     Dosage: UNK, ONE TABLET A DAY
     Route: 048
     Dates: start: 20100204
  2. ZOLOFT [Suspect]
     Dosage: UNK, 2 TABLETS A DAY
     Route: 048
     Dates: start: 20100304
  3. ZOLOFT [Suspect]
     Dosage: UNK, 4 TABLETS A DAY
     Route: 048
     Dates: start: 20100325

REACTIONS (2)
  - EATING DISORDER [None]
  - ORAL DISCOMFORT [None]
